FAERS Safety Report 13001198 (Version 1)
Quarter: 2016Q4

REPORT INFORMATION
  Report Type: Spontaneous
  Country: GB (occurrence: GB)
  Receive Date: 20161206
  Receipt Date: 20161206
  Transmission Date: 20170207
  Serious: Yes (Other)
  Sender: FDA-Public Use
  Company Number: GB-AUROBINDO-AUR-APL-2016-14627

PATIENT
  Age: 66 Year
  Sex: Female

DRUGS (1)
  1. LOSARTAN. [Suspect]
     Active Substance: LOSARTAN
     Indication: PRODUCT USED FOR UNKNOWN INDICATION
     Dosage: 50 MG, UNK
     Route: 065

REACTIONS (12)
  - Choking [Unknown]
  - Cough [Unknown]
  - Balance disorder [Unknown]
  - Nasal obstruction [Unknown]
  - Accidental exposure to product packaging [Unknown]
  - Loss of consciousness [Unknown]
  - Obstructive airways disorder [Unknown]
  - Sensation of foreign body [Unknown]
  - Visual impairment [Unknown]
  - Confusional state [Unknown]
  - Feeling abnormal [Unknown]
  - Eye contusion [Unknown]

NARRATIVE: CASE EVENT DATE: 201610
